FAERS Safety Report 15711439 (Version 2)
Quarter: 2019Q1

REPORT INFORMATION
  Report Type: Report from Study
  Country: US (occurrence: US)
  Receive Date: 20181211
  Receipt Date: 20190130
  Transmission Date: 20190417
  Serious: Yes (Other)
  Sender: FDA-Public Use
  Company Number: US-AMGEN INC.-USASP2018173561

PATIENT
  Age: 67 Year
  Sex: Female

DRUGS (7)
  1. AIMOVIG [Suspect]
     Active Substance: ERENUMAB-AOOE
     Indication: MIGRAINE
     Dosage: 70 MG, QMO
     Route: 065
     Dates: start: 201810
  2. FIORICET [Suspect]
     Active Substance: ACETAMINOPHEN\BUTALBITAL\CAFFEINE
     Indication: MIGRAINE
     Dosage: UNK
     Route: 065
     Dates: end: 2018
  3. SUMATRIPTAN. [Suspect]
     Active Substance: SUMATRIPTAN
     Indication: MIGRAINE
     Dosage: 50 MG, UNK AND 400 MG
     Route: 065
     Dates: end: 2018
  4. MAGNESIUM CITRATE. [Concomitant]
     Active Substance: MAGNESIUM CITRATE
     Indication: CONSTIPATION PROPHYLAXIS
     Dosage: 2X 500MG
  5. BOTOX [Concomitant]
     Active Substance: ONABOTULINUMTOXINA
     Dosage: UNK
  6. TOPAMAX [Concomitant]
     Active Substance: TOPIRAMATE
     Dosage: UNK
  7. SUMATRIPTAN. [Suspect]
     Active Substance: SUMATRIPTAN
     Indication: STRESS

REACTIONS (16)
  - Decreased appetite [Unknown]
  - Cognitive disorder [Unknown]
  - Fatigue [Unknown]
  - Amnesia [Unknown]
  - Depression [Unknown]
  - Colitis microscopic [Unknown]
  - Dizziness [Unknown]
  - Disturbance in attention [Unknown]
  - Panic attack [Unknown]
  - Myalgia [Unknown]
  - Migraine [Unknown]
  - Feeling abnormal [Unknown]
  - Impaired work ability [Unknown]
  - Muscular weakness [Unknown]
  - Drug effect incomplete [Unknown]
  - Nausea [Unknown]

NARRATIVE: CASE EVENT DATE: 2018
